FAERS Safety Report 17079958 (Version 2)
Quarter: 2019Q4

REPORT INFORMATION
  Report Type: Spontaneous
  Country: US (occurrence: US)
  Receive Date: 20191127
  Receipt Date: 20191211
  Transmission Date: 20200122
  Serious: No
  Sender: FDA-Public Use
  Company Number: US-B.I. PHARMACEUTICALS,INC./RIDGEFIELD-2019-US-115327

PATIENT
  Sex: Female

DRUGS (2)
  1. JARDIANCE [Suspect]
     Active Substance: EMPAGLIFLOZIN
     Indication: PRODUCT USED FOR UNKNOWN INDICATION
     Route: 065
  2. LASIX [Concomitant]
     Active Substance: FUROSEMIDE
     Indication: PRODUCT USED FOR UNKNOWN INDICATION
     Route: 065

REACTIONS (9)
  - Asthenia [Unknown]
  - Pain in extremity [Unknown]
  - Nausea [Unknown]
  - Blood glucose increased [Unknown]
  - Fatigue [Unknown]
  - Musculoskeletal pain [Unknown]
  - Headache [Unknown]
  - Weight decreased [Unknown]
  - Fibromyalgia [Unknown]
